FAERS Safety Report 7248470-8 (Version None)
Quarter: 2011Q1

REPORT INFORMATION
  Report Type: 
  Country: None (occurrence: None)
  Receive Date: 20110127
  Receipt Date: 20110120
  Transmission Date: 20110831
  Serious: Yes (Other)
  Sender: FDA-Public Use
  Company Number: NL-AMGEN-NLDSP2010004081

PATIENT
  Age: 63 Year
  Sex: Female
  Weight: 100 kg

DRUGS (3)
  1. NPLATE [Suspect]
     Dosage: 10 A?G/KG, QWK
     Dates: start: 20101111
  2. NPLATE [Suspect]
     Indication: IDIOPATHIC THROMBOCYTOPENIC PURPURA
     Dosage: 2 A?G/KG, QWK
     Dates: start: 20100817
  3. NPLATE [Suspect]
     Dosage: 1 A?G/KG, UNK

REACTIONS (5)
  - PLATELET COUNT DECREASED [None]
  - SPLENECTOMY [None]
  - HAEMORRHAGIC DIATHESIS [None]
  - UNEVALUABLE EVENT [None]
  - NO THERAPEUTIC RESPONSE [None]
